FAERS Safety Report 4465194-0 (Version None)
Quarter: 2004Q3

REPORT INFORMATION
  Report Type: 
  Country: None (occurrence: None)
  Receive Date: 20040929
  Receipt Date: 20040721
  Transmission Date: 20050211
  Serious: Yes (Other)
  Sender: FDA-Public Use
  Company Number: 2004-07-1136

PATIENT

DRUGS (1)
  1. TEMODAR [Suspect]

REACTIONS (1)
  - ANGIONEUROTIC OEDEMA [None]
